FAERS Safety Report 14544870 (Version 2)
Quarter: 2018Q1

REPORT INFORMATION
  Report Type: Spontaneous
  Country: DE (occurrence: DE)
  Receive Date: 20180217
  Receipt Date: 20180326
  Transmission Date: 20180509
  Serious: Yes (Other)
  Sender: FDA-Public Use
  Company Number: PHHY2018DE022634

PATIENT
  Age: 8 Month
  Sex: Male

DRUGS (2)
  1. KISQALI [Suspect]
     Active Substance: RIBOCICLIB
     Indication: NEUROBLASTOMA
     Dosage: 100 MG, QD
     Route: 048
     Dates: start: 20180120
  2. ZYKADIA [Suspect]
     Active Substance: CERITINIB
     Indication: NEUROBLASTOMA
     Dosage: 150 MG, QD
     Route: 048
     Dates: start: 20180120

REACTIONS (6)
  - Product use issue [Unknown]
  - Drug administered to patient of inappropriate age [Unknown]
  - Incorrect dose administered [Unknown]
  - Leukopenia [Not Recovered/Not Resolved]
  - Anaemia [Not Recovered/Not Resolved]
  - Product use in unapproved indication [Unknown]
